FAERS Safety Report 7698872-0 (Version None)
Quarter: 2011Q3

REPORT INFORMATION
  Report Type: 
  Country: None (occurrence: None)
  Receive Date: 20110819
  Receipt Date: 20110812
  Transmission Date: 20111222
  Serious: Yes (Other)
  Sender: FDA-Public Use
  Company Number: PHEH2010US03504

PATIENT
  Sex: Female

DRUGS (5)
  1. WARFARIN SODIUM [Concomitant]
  2. COUMADIN [Concomitant]
  3. ZOMETA [Suspect]
     Indication: BREAST CANCER METASTATIC
     Dates: start: 20070101
  4. OXYCONTIN [Concomitant]
  5. AMOXICILLIN [Concomitant]

REACTIONS (10)
  - PHYSICAL DISABILITY [None]
  - ERYTHEMA [None]
  - DEFORMITY [None]
  - INJURY [None]
  - ANXIETY [None]
  - OSTEONECROSIS OF JAW [None]
  - EMOTIONAL DISTRESS [None]
  - SWELLING FACE [None]
  - PAIN [None]
  - EXPOSED BONE IN JAW [None]
